FAERS Safety Report 14628533 (Version 5)
Quarter: 2019Q1

REPORT INFORMATION
  Report Type: Spontaneous
  Country: IT (occurrence: IT)
  Receive Date: 20180313
  Receipt Date: 20190222
  Transmission Date: 20190417
  Serious: Yes (Other)
  Sender: FDA-Public Use
  Company Number: IT-ACCORD-064366

PATIENT
  Age: 78 Year
  Sex: Male
  Weight: 80 kg

DRUGS (10)
  1. TIOTROPIUM/TIOTROPIUM BROMIDE [Suspect]
     Active Substance: TIOTROPIUM BROMIDE
     Indication: PRODUCT USED FOR UNKNOWN INDICATION
     Dosage: DOSE: 1 DF DAILY
  2. SPIRONOLACTONE. [Suspect]
     Active Substance: SPIRONOLACTONE
     Indication: PRODUCT USED FOR UNKNOWN INDICATION
  3. FUROSEMIDE. [Suspect]
     Active Substance: FUROSEMIDE
     Indication: PRODUCT USED FOR UNKNOWN INDICATION
     Dosage: ALSO RECEIVED 40 MG
  4. CARVEDILOL. [Suspect]
     Active Substance: CARVEDILOL
     Indication: PRODUCT USED FOR UNKNOWN INDICATION
     Dosage: 12.5 MG, BID,18.75 MG,25 MG, BID
     Route: 065
  5. LEVOTHYROXINE. [Suspect]
     Active Substance: LEVOTHYROXINE
     Indication: PRODUCT USED FOR UNKNOWN INDICATION
     Dosage: 25 MG, 50 MG, 100 MICROGRAM
  6. VALSARTAN. [Suspect]
     Active Substance: VALSARTAN
     Indication: PRODUCT USED FOR UNKNOWN INDICATION
     Dosage: DOSE: 320 MG DAILY
  7. DILATREND [Suspect]
     Active Substance: CARVEDILOL
     Indication: PRODUCT USED FOR UNKNOWN INDICATION
     Dosage: 13 MG, 38 MG, 6 MG AND 19 MG
  8. ROSUVASTATIN. [Suspect]
     Active Substance: ROSUVASTATIN
     Indication: PRODUCT USED FOR UNKNOWN INDICATION
     Dosage: ALSO RECEIVED 20 MG, 40 MG
     Route: 048
  9. IRBESARTAN. [Suspect]
     Active Substance: IRBESARTAN
     Indication: PRODUCT USED FOR UNKNOWN INDICATION
     Dosage: 150 MG, QD
  10. RIVAROXABAN [Suspect]
     Active Substance: RIVAROXABAN
     Indication: PRODUCT USED FOR UNKNOWN INDICATION
     Dosage: ALSO RECEIVED 15 MG,

REACTIONS (25)
  - Fractured coccyx [Unknown]
  - N-terminal prohormone brain natriuretic peptide abnormal [None]
  - Ejection fraction decreased [None]
  - Pulmonary arterial pressure abnormal [None]
  - Dyslipidaemia [Unknown]
  - Hypertension [Unknown]
  - Aortic aneurysm [Unknown]
  - Goitre [Unknown]
  - Bundle branch block left [Unknown]
  - Atrial fibrillation [Unknown]
  - Chronic obstructive pulmonary disease [Unknown]
  - Oxygen saturation increased [Unknown]
  - Thyroiditis [Unknown]
  - Cardiac failure chronic [Recovering/Resolving]
  - Brain natriuretic peptide abnormal [None]
  - Ventricular hypokinesia [None]
  - Fall [Unknown]
  - Type 2 diabetes mellitus [Unknown]
  - Blood thyroid stimulating hormone abnormal [Unknown]
  - C-reactive protein abnormal [None]
  - Bundle branch block right [Unknown]
  - Electrocardiogram QRS complex abnormal [None]
  - Tricuspid valve incompetence [None]
  - Mitral valve incompetence [None]
  - Cardiomegaly [None]

NARRATIVE: CASE EVENT DATE: 20150722
